FAERS Safety Report 14564111 (Version 1)
Quarter: 2018Q1

REPORT INFORMATION
  Report Type: Report from Study
  Country: US (occurrence: US)
  Receive Date: 20180222
  Receipt Date: 20180222
  Transmission Date: 20180509
  Serious: No
  Sender: FDA-Public Use
  Company Number: US-ALEXION PHARMACEUTICALS INC.-A201801683

PATIENT
  Sex: Male

DRUGS (1)
  1. SOLIRIS [Suspect]
     Active Substance: ECULIZUMAB
     Indication: MYASTHENIA GRAVIS
     Dosage: 900 MG, QW
     Route: 042
     Dates: start: 20180209

REACTIONS (4)
  - Nasal congestion [Recovered/Resolved]
  - Productive cough [Recovered/Resolved]
  - Off label use [None]
  - Headache [Recovered/Resolved]

NARRATIVE: CASE EVENT DATE: 20180209
